FAERS Safety Report 23324802 (Version 1)
Quarter: 2023Q4

REPORT INFORMATION
  Report Type: Spontaneous
  Country: US (occurrence: US)
  Receive Date: 20231221
  Receipt Date: 20231221
  Transmission Date: 20240110
  Serious: No
  Sender: FDA-Public Use
  Company Number: US-GSKCCFUS-Case-01884774_AE-105185

PATIENT
  Sex: Female

DRUGS (1)
  1. TRELEGY ELLIPTA [Suspect]
     Active Substance: FLUTICASONE FUROATE\UMECLIDINIUM BROMIDE\VILANTEROL TRIFENATATE
     Indication: Product used for unknown indication
     Dosage: UNK UNK, 1D; UG (100/62.5/25 MCG)

REACTIONS (4)
  - Weight decreased [Recovered/Resolved]
  - Dysphonia [Not Recovered/Not Resolved]
  - Nervousness [Not Recovered/Not Resolved]
  - Candida infection [Not Recovered/Not Resolved]
